FAERS Safety Report 19005939 (Version 1)
Quarter: 2021Q1

REPORT INFORMATION
  Report Type: Spontaneous
  Country: CA (occurrence: CA)
  Receive Date: 20210314
  Receipt Date: 20210314
  Transmission Date: 20210420
  Serious: Yes (Death)
  Sender: FDA-Public Use
  Company Number: CA-TEVA-2021-CA-1888477

PATIENT
  Age: 45 Year
  Sex: Female

DRUGS (8)
  1. GABAPENTIN. [Suspect]
     Active Substance: GABAPENTIN
     Indication: PRODUCT USED FOR UNKNOWN INDICATION
     Route: 048
  2. QUETIAPINE. [Suspect]
     Active Substance: QUETIAPINE
     Indication: PRODUCT USED FOR UNKNOWN INDICATION
     Route: 048
  3. TOPIRAMATE. [Suspect]
     Active Substance: TOPIRAMATE
     Indication: PRODUCT USED FOR UNKNOWN INDICATION
     Route: 048
  4. VENLAFAXINE HYDROCHLORIDE. [Suspect]
     Active Substance: VENLAFAXINE HYDROCHLORIDE
     Indication: PRODUCT USED FOR UNKNOWN INDICATION
     Route: 048
  5. CODEINE [Suspect]
     Active Substance: CODEINE
     Indication: PRODUCT USED FOR UNKNOWN INDICATION
     Route: 065
  6. ACETAMINOPHEN. [Suspect]
     Active Substance: ACETAMINOPHEN
     Indication: PRODUCT USED FOR UNKNOWN INDICATION
     Route: 048
  7. CARBAMAZEPINE. [Suspect]
     Active Substance: CARBAMAZEPINE
     Indication: PRODUCT USED FOR UNKNOWN INDICATION
     Route: 048
  8. MIRTAZAPINE. [Suspect]
     Active Substance: MIRTAZAPINE
     Indication: PRODUCT USED FOR UNKNOWN INDICATION
     Route: 048

REACTIONS (2)
  - Drug abuse [Fatal]
  - Toxicity to various agents [Fatal]
